FAERS Safety Report 4427598-1 (Version None)
Quarter: 2004Q3

REPORT INFORMATION
  Report Type: 
  Country: None (occurrence: None)
  Receive Date: 20040816
  Receipt Date: 20040816
  Transmission Date: 20050211
  Serious: Yes (Hospitalization)
  Sender: FDA-Public Use
  Company Number: None

PATIENT
  Age: 55 Year
  Sex: Female
  Weight: 93.3 kg

DRUGS (3)
  1. AVASTIN [Suspect]
     Dosage: 10 MG /KG Q 2 WKS
  2. XELODA [Suspect]
     Dosage: 1000 MG/M2 Q12 H 5 DAYS ON 2 DAYS OFF
  3. OXALIPLATIN 85 MG/M2 [Suspect]

REACTIONS (1)
  - CARDIAC FAILURE CONGESTIVE [None]
